FAERS Safety Report 19642783 (Version 1)
Quarter: 2021Q3

REPORT INFORMATION
  Report Type: Spontaneous
  Country: PE (occurrence: PE)
  Receive Date: 20210731
  Receipt Date: 20210731
  Transmission Date: 20211014
  Serious: Yes (Hospitalization)
  Sender: FDA-Public Use
  Company Number: PE-LUPIN PHARMACEUTICALS INC.-2021-13400

PATIENT
  Age: 72 Year
  Sex: Male
  Weight: 48 kg

DRUGS (13)
  1. INSULIN [Suspect]
     Active Substance: INSULIN NOS
     Indication: TYPE 2 DIABETES MELLITUS
     Dosage: UNK (REQUIRED MORE THAN 1 U/KG/DAY)
     Route: 058
  2. METFORMIN [Suspect]
     Active Substance: METFORMIN HYDROCHLORIDE
     Indication: TYPE 2 DIABETES MELLITUS
     Dosage: 850 MILLIGRAM, TID
     Route: 048
  3. INSULIN [Suspect]
     Active Substance: INSULIN NOS
     Dosage: UNK (7U BEFORE BREAKFAST, LUNCH AND DINNER)
     Route: 065
  4. INSULIN [Suspect]
     Active Substance: INSULIN NOS
     Dosage: UNK (25U BEFORE BREAKFAST, 30U BEFORE LUNCH, AND 25U BEFORE DINNER)
     Route: 065
  5. METFORMIN [Suspect]
     Active Substance: METFORMIN HYDROCHLORIDE
     Dosage: 850 MILLIGRAM, TID
     Route: 048
  6. GLIBENCLAMIDE [Suspect]
     Active Substance: GLYBURIDE
     Indication: TYPE 2 DIABETES MELLITUS
     Dosage: 5 MILLIGRAM, TID
     Route: 048
  7. CYCLOPHOSPHAMIDE. [Suspect]
     Active Substance: CYCLOPHOSPHAMIDE
     Indication: TYPE 2 DIABETES MELLITUS
     Dosage: 50 MILLIGRAM (SIX PULSES WERE ADMINISTERED)
     Route: 065
  8. NPH INSULIN [Suspect]
     Active Substance: INSULIN BEEF
     Indication: TYPE 2 DIABETES MELLITUS
     Dosage: UNK UNK, BID (AT DOSES OF 30U IN THE MORNING AND 20U AT NIGHT)
     Route: 065
  9. INSULIN [Suspect]
     Active Substance: INSULIN NOS
     Dosage: UNK (DOSE PROGRESSIVELY DECREASED)
     Route: 058
  10. NPH INSULIN [Suspect]
     Active Substance: INSULIN BEEF
     Dosage: UNK UNK, BID (DOSE WAS PROGRESSIVELY INCREASED TO 72U IN THE MORNING AND NIGHT)
     Route: 065
  11. METHYLPREDNISOLONE. [Suspect]
     Active Substance: METHYLPREDNISOLONE
     Indication: IMMUNOSUPPRESSION
     Dosage: 1 GRAM (1G FOR 2 DAYS, REPEATED 2 WEEKS LATER AND THEN EVERY 4 WEEKS (SIX PULSES WERE ADMINISTERED))
     Route: 042
  12. INSULIN [Suspect]
     Active Substance: INSULIN NOS
     Dosage: UNK (REQUIRED MORE THAN 2 U/KG/DAY)
     Route: 058
  13. PIOGLITAZONE. [Suspect]
     Active Substance: PIOGLITAZONE
     Indication: TYPE 2 DIABETES MELLITUS
     Dosage: 30 MILLIGRAM, QD
     Route: 065

REACTIONS (3)
  - Hypoglycaemia [Recovered/Resolved]
  - Off label use [Unknown]
  - Drug ineffective [Unknown]
